FAERS Safety Report 5150190-0 (Version None)
Quarter: 2006Q4

REPORT INFORMATION
  Report Type: 
  Country: None (occurrence: None)
  Receive Date: 20061108
  Receipt Date: 20061026
  Transmission Date: 20070319
  Serious: Yes (Hospitalization)
  Sender: FDA-Public Use
  Company Number: 236753K06USA

PATIENT
  Age: 35 Year
  Sex: Female

DRUGS (7)
  1. REBIF [Suspect]
     Indication: MULTIPLE SCLEROSIS
     Dosage: 44 MCG, 3 IN 1 WEEKS,
     Dates: start: 20060222
  2. CELEBREX [Concomitant]
  3. IMITREX [Concomitant]
  4. ZOLOFT [Concomitant]
  5. ALLEGRA D (ALLEGRA-D /01367401/) [Concomitant]
  6. SINGULAIR (MONTELUKAST /01362601/) [Concomitant]
  7. ZYRTEC [Concomitant]

REACTIONS (8)
  - DEPRESSION [None]
  - FEELING HOT [None]
  - NASAL ABSCESS [None]
  - SINUSITIS [None]
  - SWELLING FACE [None]
  - TONSILLECTOMY [None]
  - WEIGHT INCREASED [None]
  - WOUND SECRETION [None]
